FAERS Safety Report 24923733 (Version 1)
Quarter: 2025Q1

REPORT INFORMATION
  Report Type: Spontaneous
  Country: FR (occurrence: FR)
  Receive Date: 20250204
  Receipt Date: 20250204
  Transmission Date: 20250409
  Serious: Yes (Other)
  Sender: ROCHE
  Company Number: None

PATIENT
  Age: 58 Year
  Sex: Female
  Weight: 80 kg

DRUGS (1)
  1. ALTEPLASE [Suspect]
     Active Substance: ALTEPLASE
     Indication: Thrombolysis
     Route: 040
     Dates: start: 20250117, end: 20250117

REACTIONS (3)
  - Mouth haemorrhage [Recovered/Resolved]
  - Hypofibrinogenaemia [Recovered/Resolved]
  - Coagulation factor decreased [Recovered/Resolved]

NARRATIVE: CASE EVENT DATE: 20250117
